FAERS Safety Report 7681258-2 (Version None)
Quarter: 2011Q3

REPORT INFORMATION
  Report Type: 
  Country: None (occurrence: None)
  Receive Date: 20110812
  Receipt Date: 20110712
  Transmission Date: 20111222
  Serious: Yes (Hospitalization)
  Sender: FDA-Public Use
  Company Number: PHHY2011JP38278

PATIENT
  Age: 61 Year
  Sex: Female

DRUGS (6)
  1. SODIUM BICARBONATE [Concomitant]
  2. TRASTUZUMAB [Suspect]
     Dosage: 2 MG/KG, REPEATED WEEKLY
     Dates: start: 20091001
  3. ZOMETA [Suspect]
     Indication: HYPERCALCAEMIA OF MALIGNANCY
     Dosage: 4 MG, OVER 15 MINUTES WEEKLY
     Dates: start: 20090901, end: 20091101
  4. PACLITAXEL [Suspect]
     Dosage: 30 MG/M2, REPEATED WEEKLY
     Dates: start: 20091001
  5. TRASTUZUMAB [Suspect]
     Indication: HYPERCALCAEMIA OF MALIGNANCY
     Dosage: 4 MG/KG, UNK
  6. SPIRONOLACTONE [Concomitant]

REACTIONS (13)
  - URINE PHOSPHORUS INCREASED [None]
  - ACIDOSIS HYPERCHLORAEMIC [None]
  - AMINOACIDURIA [None]
  - HYPOURICAEMIA [None]
  - DIABETIC NEPHROPATHY [None]
  - PROTEINURIA [None]
  - HYPOKALAEMIA [None]
  - GLYCOSURIA [None]
  - BLOOD BICARBONATE DECREASED [None]
  - HYPOCALCAEMIA [None]
  - FANCONI SYNDROME [None]
  - HYPOPHOSPHATAEMIA [None]
  - URINE POTASSIUM INCREASED [None]
